FAERS Safety Report 16011778 (Version 1)
Quarter: 2019Q1

REPORT INFORMATION
  Report Type: Spontaneous
  Country: US (occurrence: US)
  Receive Date: 20190130
  Receipt Date: 20190130
  Transmission Date: 20190418
  Serious: No
  Sender: FDA-Public Use
  Company Number: None

PATIENT
  Age: 55 Year
  Sex: Male

DRUGS (3)
  1. REPATHA [Suspect]
     Active Substance: EVOLOCUMAB
     Indication: ARTERIOSCLEROSIS CORONARY ARTERY
  2. REPATHA [Suspect]
     Active Substance: EVOLOCUMAB
     Indication: ARTERIOSCLEROSIS CORONARY ARTERY
     Dosage: INJECT 140 SUBCUTANEOUSLY EVERY 2 WEEKS AS DIRECTED?
     Route: 058
     Dates: start: 201711
  3. REPATHA [Suspect]
     Active Substance: EVOLOCUMAB
     Indication: HYPERLIPIDAEMIA
     Dosage: INJECT 140 SUBCUTANEOUSLY EVERY 2 WEEKS AS DIRECTED?
     Route: 058
     Dates: start: 201711

REACTIONS (2)
  - Product dose omission [None]
  - Arrhythmia [None]
